FAERS Safety Report 9280911 (Version 1)
Quarter: 2013Q2

REPORT INFORMATION
  Report Type: Spontaneous
  Country: US (occurrence: US)
  Receive Date: 20130509
  Receipt Date: 20130509
  Transmission Date: 20140414
  Serious: No
  Sender: FDA-Public Use
  Company Number: US-009507513-1305USA003416

PATIENT
  Age: 7 Year
  Sex: Female

DRUGS (1)
  1. NASONEX [Suspect]
     Indication: EAR INFECTION
     Dosage: ONE SPRAY IN EACH NOSTRIL /ONCE A DAY
     Route: 055

REACTIONS (4)
  - Increased upper airway secretion [Not Recovered/Not Resolved]
  - Underdose [Unknown]
  - Inappropriate schedule of drug administration [Unknown]
  - Product quality issue [Unknown]
